FAERS Safety Report 17104087 (Version 1)
Quarter: 2019Q4

REPORT INFORMATION
  Report Type: Spontaneous
  Country: CH (occurrence: CH)
  Receive Date: 20191203
  Receipt Date: 20191203
  Transmission Date: 20200122
  Serious: Yes (Life-Threatening, Hospitalization, Other)
  Sender: FDA-Public Use
  Company Number: CH-BAYER-2019-216543

PATIENT
  Age: 46 Year
  Sex: Male
  Weight: 72 kg

DRUGS (6)
  1. LUBEXYL [Concomitant]
     Dosage: 1 DF, QD
     Route: 061
  2. GADOVIST [Suspect]
     Active Substance: GADOBUTROL
     Indication: SCAN WITH CONTRAST
  3. CO-LISINOPRIL [Concomitant]
     Active Substance: HYDROCHLOROTHIAZIDE\LISINOPRIL
     Indication: HYPERTENSION
     Dosage: 1 DF, QD
  4. GADOVIST [Suspect]
     Active Substance: GADOBUTROL
     Indication: MAGNETIC RESONANCE IMAGING NECK
     Dosage: 5 ML, ONCE
     Route: 042
     Dates: start: 20191024, end: 20191024
  5. ACIDUM FOLICUM [Concomitant]
     Active Substance: FOLIC ACID
     Dosage: 5 MG, QD
     Route: 048
  6. NALTREXIN [Concomitant]
     Active Substance: NALTREXONE HYDROCHLORIDE
     Indication: ABSTAINS FROM ALCOHOL
     Dosage: 50 MG, QD
     Route: 048

REACTIONS (4)
  - Cardiac arrest [Recovered/Resolved]
  - Anaphylactoid shock [Recovered/Resolved]
  - Resuscitation [None]
  - Ventricular fibrillation [None]

NARRATIVE: CASE EVENT DATE: 20191024
